FAERS Safety Report 4901548-3 (Version None)
Quarter: 2006Q1

REPORT INFORMATION
  Report Type: 
  Country: None (occurrence: None)
  Receive Date: 20060206
  Receipt Date: 20050128
  Transmission Date: 20060701
  Serious: Yes (Other)
  Sender: FDA-Public Use
  Company Number: US-BRISTOL-MYERS SQUIBB COMPANY-12843199

PATIENT
  Age: 24 Year
  Sex: Female
  Weight: 122 kg

DRUGS (8)
  1. PACLITAXEL [Suspect]
     Indication: BREAST CANCER
     Dosage: DOSE:  6 MG/ML
     Route: 042
     Dates: start: 20050128, end: 20050128
  2. CARBOPLATIN [Concomitant]
     Indication: BREAST CANCER
  3. HERCEPTIN [Concomitant]
     Indication: BREAST CANCER
  4. DEXAMETHASONE TAB [Concomitant]
     Indication: PREMEDICATION
     Route: 042
  5. DIPHENHYDRAMINE HCL [Concomitant]
     Indication: PREMEDICATION
     Route: 042
  6. RANITIDINE [Concomitant]
     Indication: PREMEDICATION
     Route: 042
  7. LORAZEPAM [Concomitant]
     Indication: PREMEDICATION
     Route: 042
  8. TYLENOL [Concomitant]
     Indication: PREMEDICATION
     Route: 048

REACTIONS (2)
  - DYSPNOEA [None]
  - ERYTHEMA [None]
